FAERS Safety Report 7424369-9 (Version None)
Quarter: 2011Q2

REPORT INFORMATION
  Report Type: 
  Country: None (occurrence: None)
  Receive Date: 20110419
  Receipt Date: 20110408
  Transmission Date: 20111010
  Serious: Yes (Death)
  Sender: FDA-Public Use
  Company Number: CA-MUTUAL PHARMACEUTICAL COMPANY, INC.-2010P1001696

PATIENT
  Age: 84 Year
  Sex: Male
  Weight: 77 kg

DRUGS (9)
  1. COLCHICINE 0.6 MG TABLET [Suspect]
     Route: 048
     Dates: start: 20100125, end: 20100210
  2. ASPIRIN [Concomitant]
     Route: 048
     Dates: end: 20100213
  3. PREVACID [Concomitant]
     Route: 048
     Dates: end: 20100213
  4. ESOMEPRAZOLE [Concomitant]
     Route: 048
     Dates: end: 20100213
  5. DILTIAZEM [Suspect]
     Route: 048
     Dates: end: 20100213
  6. METFORMIN [Concomitant]
     Route: 048
     Dates: end: 20100213
  7. CITALOPRAM HYDROBROMIDE [Concomitant]
     Route: 048
     Dates: end: 20100213
  8. ALLOPURINOL [Concomitant]
     Route: 048
     Dates: start: 20100203, end: 20100213
  9. DILAUDID [Concomitant]
     Route: 048
     Dates: start: 20091229, end: 20100213

REACTIONS (14)
  - SEPTIC SHOCK [None]
  - DIARRHOEA [None]
  - RETCHING [None]
  - NAUSEA [None]
  - UNRESPONSIVE TO STIMULI [None]
  - SPUTUM DISCOLOURED [None]
  - HEART RATE IRREGULAR [None]
  - DRUG INTERACTION [None]
  - DYSPHAGIA [None]
  - HYPERHIDROSIS [None]
  - VOMITING [None]
  - PNEUMONIA [None]
  - OXYGEN SATURATION DECREASED [None]
  - LEUKOPENIA [None]
